FAERS Safety Report 20475720 (Version 1)
Quarter: 2022Q1

REPORT INFORMATION
  Report Type: Spontaneous
  Country: US (occurrence: US)
  Receive Date: 20220215
  Receipt Date: 20220215
  Transmission Date: 20220423
  Serious: Yes (Death)
  Sender: FDA-Public Use
  Company Number: US-PERRIGO-22US002388

PATIENT
  Age: 82 Year
  Sex: Female

DRUGS (9)
  1. POTASSIUM CHLORIDE [Suspect]
     Active Substance: POTASSIUM CHLORIDE
     Indication: Product administration error
     Dosage: UNKNOWN, UNKNOWN
     Route: 048
  2. DILTIAZEM [Suspect]
     Active Substance: DILTIAZEM
     Indication: Product administration error
     Dosage: UNKNOWN, UNKNOWN
     Route: 048
  3. GLIPIZIDE [Suspect]
     Active Substance: GLIPIZIDE
     Indication: Product administration error
     Dosage: UNKNOWN, UNKNOWN
     Route: 048
  4. METOPROLOL [Suspect]
     Active Substance: METOPROLOL
     Indication: Product administration error
     Dosage: UNKNOWN, UNKNOWN
     Route: 048
  5. APIXABAN [Suspect]
     Active Substance: APIXABAN
     Indication: Product administration error
     Dosage: UNKNOWN, UNKNOWN
     Route: 048
  6. AMLODIPINE [Suspect]
     Active Substance: AMLODIPINE BESYLATE
     Indication: Product administration error
     Dosage: UNKNOWN, UNKNOWN
     Route: 048
  7. SALICYLATES NOS [Suspect]
     Active Substance: UNSPECIFIED INGREDIENT
     Indication: Product administration error
     Dosage: UNKNOWN, UNKNOWN
     Route: 048
  8. DULOXETINE [Suspect]
     Active Substance: DULOXETINE
     Indication: Product administration error
     Dosage: UNKNOWN, UNKNOWN
     Route: 048
  9. PIOGLITAZONE [Suspect]
     Active Substance: PIOGLITAZONE
     Indication: Product administration error
     Dosage: UNKNOWN, UNKNOWN
     Route: 048

REACTIONS (1)
  - Exposure to toxic agent [Fatal]

NARRATIVE: CASE EVENT DATE: 20200101
